FAERS Safety Report 9310686 (Version 1)
Quarter: 2013Q2

REPORT INFORMATION
  Report Type: Spontaneous
  Country: US (occurrence: US)
  Receive Date: 20130527
  Receipt Date: 20130527
  Transmission Date: 20140414
  Serious: No
  Sender: FDA-Public Use
  Company Number: US-009507513-1305USA015261

PATIENT
  Sex: Male

DRUGS (1)
  1. NEXPLANON [Suspect]
     Dosage: UNK

REACTIONS (2)
  - Limb injury [Unknown]
  - Injury associated with device [Unknown]
